FAERS Safety Report 6872307-X (Version None)
Quarter: 2010Q3

REPORT INFORMATION
  Report Type: 
  Country: None (occurrence: None)
  Receive Date: 20100723
  Receipt Date: 20080921
  Transmission Date: 20110219
  Serious: No
  Sender: FDA-Public Use
  Company Number: US-PFIZER INC-2008081045

PATIENT
  Sex: Male
  Weight: 108.86 kg

DRUGS (20)
  1. CHANTIX [Suspect]
     Indication: SMOKING CESSATION THERAPY
     Dates: start: 20080201
  2. URECHOLINE [Concomitant]
  3. OMEPRAZOLE [Concomitant]
  4. ASPIRIN [Concomitant]
  5. GEMFIBROZIL [Concomitant]
  6. ALLOPURINOL [Concomitant]
  7. METOPROLOL SUCCINATE [Concomitant]
  8. LISINOPRIL [Concomitant]
  9. ISOSORBIDE MONONITRATE [Concomitant]
  10. SEROQUEL [Concomitant]
  11. CYMBALTA [Concomitant]
  12. KLONOPIN [Concomitant]
  13. LAMOTRIGINE [Concomitant]
  14. LASIX [Concomitant]
  15. KLOR-CON [Concomitant]
  16. ALL OTHER THERAPEUTIC PRODUCTS [Concomitant]
  17. NIASPAN [Concomitant]
  18. FLONASE [Concomitant]
  19. INSULIN GLARGINE [Concomitant]
  20. NOVOLIN [Concomitant]

REACTIONS (2)
  - ABNORMAL DREAMS [None]
  - URINARY TRACT INFECTION [None]
